FAERS Safety Report 14397852 (Version 1)
Quarter: 2018Q1

REPORT INFORMATION
  Report Type: Spontaneous
  Country: US (occurrence: US)
  Receive Date: 20180116
  Receipt Date: 20180116
  Transmission Date: 20180509
  Serious: No
  Sender: FDA-Public Use
  Company Number: US-ALLERGAN-1774000US

PATIENT
  Sex: Female

DRUGS (4)
  1. JUVEDERM VOLUMA XC [Concomitant]
     Active Substance: HYALURONIC ACID\LIDOCAINE HYDROCHLORIDE
     Indication: SKIN WRINKLING
     Dosage: 2 ML, SINGLE
     Dates: start: 20171207, end: 20171207
  2. JUVEDERM VOLLURE XC [Concomitant]
     Indication: SKIN WRINKLING
     Dosage: 2 ML, SINGLE
     Dates: start: 20171207, end: 20171207
  3. JUVEDERM [Concomitant]
     Active Substance: HYALURONIC ACID
     Indication: SKIN WRINKLING
     Dosage: 4 ML, SINGLE
     Dates: start: 20171207, end: 20171207
  4. BOTOX [Suspect]
     Active Substance: ONABOTULINUMTOXINA
     Indication: PRODUCT USED FOR UNKNOWN INDICATION
     Dosage: 51 UNITS, SINGLE
     Route: 030
     Dates: start: 20171207, end: 20171207

REACTIONS (2)
  - Injection site swelling [Unknown]
  - Injection site oedema [Unknown]
